FAERS Safety Report 5780961-9 (Version None)
Quarter: 2008Q2

REPORT INFORMATION
  Report Type: 
  Country: None (occurrence: None)
  Receive Date: 20080620
  Receipt Date: 20080610
  Transmission Date: 20081010
  Serious: Yes (Death, Hospitalization, Other)
  Sender: FDA-Public Use
  Company Number: JP-MERCK-0610USA00711

PATIENT
  Age: 5 Year
  Sex: Female

DRUGS (4)
  1. DECADRON SRC [Suspect]
     Indication: ACUTE LYMPHOCYTIC LEUKAEMIA
     Route: 048
  2. VINCRISTINE SULFATE [Concomitant]
     Indication: ACUTE LYMPHOCYTIC LEUKAEMIA
     Route: 041
  3. LEUNASE [Concomitant]
     Indication: ACUTE LYMPHOCYTIC LEUKAEMIA
     Route: 030
  4. METHOTREXATE [Concomitant]
     Indication: ACUTE LYMPHOCYTIC LEUKAEMIA
     Route: 051

REACTIONS (5)
  - DISSEMINATED INTRAVASCULAR COAGULATION [None]
  - HAEMORRHAGE [None]
  - HERPES ZOSTER DISSEMINATED [None]
  - IMMUNE SYSTEM DISORDER [None]
  - MULTI-ORGAN FAILURE [None]
